FAERS Safety Report 7833839-0 (Version None)
Quarter: 2011Q4

REPORT INFORMATION
  Report Type: 
  Country: None (occurrence: None)
  Receive Date: 20111024
  Receipt Date: 20111011
  Transmission Date: 20120403
  Serious: Yes (Other)
  Sender: FDA-Public Use
  Company Number: US-VIIV HEALTHCARE LIMITED-B0655070A

PATIENT
  Age: 41 Year
  Sex: Male
  Weight: 71.4 kg

DRUGS (15)
  1. NORVIR [Suspect]
     Dosage: 100MG TWICE PER DAY
     Route: 048
     Dates: start: 20110601
  2. DAPSONE [Concomitant]
     Dosage: 100MG PER DAY
     Route: 048
     Dates: start: 20040308
  3. ACYCLOVIR [Concomitant]
     Route: 048
     Dates: start: 20080605
  4. ALPRAZOLAM [Concomitant]
     Dosage: 1MG AS REQUIRED
     Route: 048
     Dates: start: 20040403
  5. DICLOXACILLIN [Concomitant]
     Route: 048
     Dates: start: 20071126
  6. ACETAMINOPHEN AND HYDROCODONE BITARTRATE [Concomitant]
     Dosage: 650MG AS REQUIRED
     Route: 048
     Dates: start: 20110714
  7. ISENTRESS [Suspect]
     Dosage: 400MG TWICE PER DAY
     Route: 048
     Dates: start: 20091202
  8. FLUCONAZOLE [Concomitant]
     Dosage: 200MG PER DAY
     Route: 048
     Dates: start: 20110601
  9. ETRAVIRINE [Concomitant]
     Indication: HIV INFECTION
     Dosage: 100MG TWICE PER DAY
     Route: 048
     Dates: start: 20080428
  10. ZOLPIDEM [Concomitant]
     Route: 048
     Dates: start: 20070720
  11. TRUVADA [Suspect]
     Indication: HIV INFECTION
     Route: 048
     Dates: start: 20081205
  12. PREZISTA [Suspect]
     Dosage: 600MG TWICE PER DAY
     Route: 048
     Dates: start: 20110601
  13. FLUOXETINE [Concomitant]
     Route: 048
     Dates: start: 20060926
  14. ZOLPIDEM [Concomitant]
     Dosage: 10MG AT NIGHT
     Route: 048
     Dates: start: 20110531
  15. MARAVIROC [Suspect]
     Indication: HIV INFECTION
     Dosage: 150MG TWICE PER DAY
     Dates: start: 20060213, end: 20060428

REACTIONS (3)
  - ANOGENITAL DYSPLASIA [None]
  - CARCINOMA IN SITU [None]
  - ANOGENITAL WARTS [None]
